FAERS Safety Report 7503757-6 (Version None)
Quarter: 2011Q2

REPORT INFORMATION
  Report Type: 
  Country: None (occurrence: None)
  Receive Date: 20110524
  Receipt Date: 20110524
  Transmission Date: 20111010
  Serious: Yes (Other)
  Sender: FDA-Public Use
  Company Number: None

PATIENT
  Age: 27 Year
  Sex: Female

DRUGS (6)
  1. RISPERDAL CONSTA [Suspect]
     Indication: PSYCHOTIC DISORDER
     Dosage: 25 MG Q 2 WEEKS IM
     Route: 030
     Dates: start: 20110215, end: 20110329
  2. OXCARBAZEPINE [Concomitant]
  3. FENOFIBRATE [Concomitant]
  4. LEVOTHYROXINE SODIUM [Concomitant]
  5. RISPERIDONE [Suspect]
     Indication: PSYCHOTIC DISORDER
     Dosage: 3 MG BID PO
     Route: 048
     Dates: start: 20110131, end: 20110329
  6. TOPIRAMATE [Concomitant]

REACTIONS (2)
  - SEDATION [None]
  - HYPERPROLACTINAEMIA [None]
